FAERS Safety Report 15392019 (Version 1)
Quarter: 2018Q3

REPORT INFORMATION
  Report Type: Spontaneous
  Country: US (occurrence: US)
  Receive Date: 20180910
  Receipt Date: 20180910
  Transmission Date: 20181010
  Serious: Yes (Hospitalization)
  Sender: FDA-Public Use
  Company Number: None

PATIENT
  Age: 75 Year
  Sex: Male
  Weight: 98.9 kg

DRUGS (1)
  1. TECENTRIQ [Suspect]
     Active Substance: ATEZOLIZUMAB
     Indication: NON-SMALL CELL LUNG CANCER STAGE IV
     Dosage: ?          OTHER FREQUENCY:EVERY 3 WEEKS;?
     Route: 041
     Dates: start: 20180627, end: 20180627

REACTIONS (13)
  - Nausea [None]
  - Pancytopenia [None]
  - Febrile neutropenia [None]
  - Fatigue [None]
  - Autoimmune colitis [None]
  - Abdominal pain lower [None]
  - Pneumonia [None]
  - Asthenia [None]
  - Vomiting [None]
  - Sepsis [None]
  - Abdominal sepsis [None]
  - Diverticulitis [None]
  - Fall [None]

NARRATIVE: CASE EVENT DATE: 20180706
